FAERS Safety Report 5850541-5 (Version None)
Quarter: 2008Q3

REPORT INFORMATION
  Report Type: 
  Country: None (occurrence: None)
  Receive Date: 20080819
  Receipt Date: 20080819
  Transmission Date: 20090109
  Serious: Yes (Life-Threatening, Hospitalization, Disabling)
  Sender: FDA-Public Use
  Company Number: None

PATIENT
  Sex: Female

DRUGS (2)
  1. TENUATE [Suspect]
     Indication: EXERCISE LACK OF
     Dosage: 14 1 DAILY AM ONGOING UNTIL PROPER PRODUCT IS DISPENSED
  2. TENUATE [Suspect]
     Indication: OVERWEIGHT
     Dosage: 14 1 DAILY AM ONGOING UNTIL PROPER PRODUCT IS DISPENSED

REACTIONS (5)
  - DRUG INEFFECTIVE [None]
  - MEDICATION TAMPERING [None]
  - MENTAL DISORDER [None]
  - NERVOUS SYSTEM DISORDER [None]
  - SELF ESTEEM DECREASED [None]
